FAERS Safety Report 9220898 (Version 1)
Quarter: 2013Q2

REPORT INFORMATION
  Report Type: Report from Study
  Country: JP (occurrence: JP)
  Receive Date: 20130409
  Receipt Date: 20130409
  Transmission Date: 20140414
  Serious: Yes (Hospitalization)
  Sender: FDA-Public Use
  Company Number: JP-GLAXOSMITHKLINE-B0656880A

PATIENT
  Age: 61 Year
  Sex: Female
  Weight: 65 kg

DRUGS (9)
  1. TYKERB [Suspect]
     Indication: BREAST CANCER
     Route: 048
     Dates: start: 20090916, end: 20100315
  2. TYKERB [Suspect]
     Indication: BREAST CANCER
     Route: 048
     Dates: start: 20100408, end: 20100506
  3. XELODA [Suspect]
     Route: 048
     Dates: start: 20090916, end: 20090929
  4. XELODA [Suspect]
     Route: 048
     Dates: start: 20090930, end: 20100126
  5. XELODA [Suspect]
     Route: 048
     Dates: start: 20100127, end: 20100223
  6. XELODA [Suspect]
     Route: 048
     Dates: start: 20100303, end: 20100315
  7. XELODA [Suspect]
     Route: 048
     Dates: start: 20100408
  8. TAXOL [Suspect]
     Indication: BREAST CANCER
     Route: 042
     Dates: start: 20100303, end: 20100310
  9. TAXOL [Suspect]
     Indication: BREAST CANCER
     Route: 042
     Dates: start: 20100414, end: 20100428

REACTIONS (9)
  - Cellulitis [Recovered/Resolved]
  - Aphagia [Recovered/Resolved]
  - Febrile neutropenia [Recovered/Resolved]
  - Eczema [Recovering/Resolving]
  - Diarrhoea [Recovered/Resolved]
  - Febrile neutropenia [Recovered/Resolved]
  - Cellulitis [Recovered/Resolved]
  - Diarrhoea [Recovered/Resolved]
  - Palmar-plantar erythrodysaesthesia syndrome [Recovered/Resolved]
